FAERS Safety Report 6417525-X (Version None)
Quarter: 2009Q4

REPORT INFORMATION
  Report Type: 
  Country: None (occurrence: None)
  Receive Date: 20091028
  Receipt Date: 20091021
  Transmission Date: 20100525
  Serious: Yes (Other)
  Sender: FDA-Public Use
  Company Number: BR-PFIZER INC-2009244586

PATIENT
  Age: 61 Year

DRUGS (5)
  1. LIPITOR [Suspect]
     Indication: BLOOD CHOLESTEROL INCREASED
     Dosage: 40 MG, 1X/DAY
  2. CRESTOR [Suspect]
  3. SUSTRATE [Concomitant]
     Dosage: UNK
  4. MONOCORDIL [Concomitant]
     Dosage: UNK
  5. CARDIZEM [Concomitant]
     Dosage: UNK

REACTIONS (3)
  - CORONARY ARTERY DISEASE [None]
  - NEOPLASM [None]
  - PROSTATE CANCER [None]
